FAERS Safety Report 24455514 (Version 2)
Quarter: 2024Q4

REPORT INFORMATION
  Report Type: Spontaneous
  Country: IL (occurrence: IL)
  Receive Date: 20241017
  Receipt Date: 20241018
  Transmission Date: 20250115
  Serious: No
  Sender: ROCHE
  Company Number: IL-ROCHE-3481967

PATIENT
  Sex: Male
  Weight: 71.0 kg

DRUGS (12)
  1. MABTHERA [Suspect]
     Active Substance: RITUXIMAB
     Indication: Mantle cell lymphoma
     Dosage: 6 CYCLES
     Route: 065
     Dates: start: 20190201, end: 201907
  2. MABTHERA [Suspect]
     Active Substance: RITUXIMAB
     Dosage: 7 CYCLE
     Route: 065
     Dates: start: 201912, end: 20210301
  3. CYCLOPHOSPHAMIDE [Suspect]
     Active Substance: CYCLOPHOSPHAMIDE
     Indication: Mantle cell lymphoma
     Route: 065
     Dates: start: 20190201, end: 201907
  4. DOXORUBICIN [Suspect]
     Active Substance: DOXORUBICIN
     Indication: Mantle cell lymphoma
     Route: 065
     Dates: start: 20190201, end: 201907
  5. VINCRISTINE [Suspect]
     Active Substance: VINCRISTINE
     Indication: Mantle cell lymphoma
     Route: 065
     Dates: start: 20190201, end: 201907
  6. PREDNISONE [Suspect]
     Active Substance: PREDNISONE
     Indication: Mantle cell lymphoma
     Route: 065
     Dates: start: 20190201, end: 201907
  7. DEXAMETHASONE [Suspect]
     Active Substance: DEXAMETHASONE
     Indication: Mantle cell lymphoma
     Route: 065
     Dates: start: 20190201, end: 201907
  8. CYTARABINE [Suspect]
     Active Substance: CYTARABINE
     Indication: Mantle cell lymphoma
     Route: 065
     Dates: start: 20190201, end: 201907
  9. CISPLATIN [Suspect]
     Active Substance: CISPLATIN
     Indication: Mantle cell lymphoma
     Route: 065
     Dates: start: 20190201, end: 201907
  10. IBRUTINIB [Suspect]
     Active Substance: IBRUTINIB
     Indication: Mantle cell lymphoma
     Dosage: CYCLE 13
     Route: 065
     Dates: start: 20211001, end: 20221001
  11. VENETOCLAX [Suspect]
     Active Substance: VENETOCLAX
     Indication: Mantle cell lymphoma
     Dosage: CYCLE 2
     Route: 065
     Dates: start: 20221001, end: 20221201
  12. NEMTABRUTINIB [Suspect]
     Active Substance: NEMTABRUTINIB
     Indication: Mantle cell lymphoma
     Dosage: 3 CYCLE
     Route: 065
     Dates: start: 20230901, end: 20231201

REACTIONS (1)
  - Disease progression [Unknown]
